FAERS Safety Report 8571587-2 (Version None)
Quarter: 2012Q3

REPORT INFORMATION
  Report Type: 
  Country: None (occurrence: None)
  Receive Date: 20120806
  Receipt Date: 20120801
  Transmission Date: 20120928
  Serious: Yes (Other)
  Sender: FDA-Public Use
  Company Number: PHHY2012BR066974

PATIENT
  Sex: Female
  Weight: 45 kg

DRUGS (9)
  1. CARBAMAZEPINE [Suspect]
     Dosage: 200 MG, UNK
  2. CARBAMAZEPINE [Suspect]
     Dosage: 200 MG, UNK
  3. DEPAKENE [Suspect]
     Indication: CONVULSION
     Dosage: 1 DF, Q12H
  4. TEGRETOL [Suspect]
     Dosage: 1 DF, Q8H
     Route: 048
  5. TEGRETOL [Suspect]
     Dosage: 1 DF, Q8H
  6. TEGRETOL [Suspect]
     Indication: CONVULSION
     Dosage: 1 DF, Q12H
     Route: 048
  7. TEGRETOL [Suspect]
     Dosage: 200 MG, UNK
     Route: 048
  8. TEGRETOL [Suspect]
     Dosage: 1 DF, Q6H
  9. CARBAMAZEPINE [Suspect]
     Indication: CONVULSION
     Dosage: 200 MG, UNK

REACTIONS (9)
  - HEADACHE [None]
  - FEELING ABNORMAL [None]
  - DEPRESSED MOOD [None]
  - CONVULSION [None]
  - GINGIVAL PAIN [None]
  - AGITATION [None]
  - SYNCOPE [None]
  - FALL [None]
  - HEAD INJURY [None]
